FAERS Safety Report 4626008-9 (Version None)
Quarter: 2005Q2

REPORT INFORMATION
  Report Type: 
  Country: None (occurrence: None)
  Receive Date: 20050404
  Receipt Date: 20050322
  Transmission Date: 20051028
  Serious: Yes (Death)
  Sender: FDA-Public Use
  Company Number: FR-JNJFOC-20050300079

PATIENT
  Sex: Female
  Weight: 91.1 kg

DRUGS (10)
  1. RISPERDAL [Suspect]
     Route: 049
  2. RISPERDAL [Suspect]
     Route: 049
  3. RISPERDAL [Suspect]
     Route: 049
  4. ABILIFY [Suspect]
     Route: 049
  5. RIVOTRIL [Suspect]
     Indication: INSOMNIA
     Route: 049
  6. LEPTICUR [Suspect]
     Route: 049
  7. LIPANTHYL [Suspect]
     Route: 049
  8. TERCIAN [Suspect]
     Indication: AGITATION
     Route: 049
  9. SULFARLEM [Concomitant]
  10. PROZAC [Concomitant]

REACTIONS (9)
  - AGGRESSION [None]
  - CARDIAC ARREST [None]
  - DEATH [None]
  - FALL [None]
  - PSYCHOMOTOR AGITATION [None]
  - PULMONARY EMBOLISM [None]
  - PYREXIA [None]
  - RESPIRATORY ARREST [None]
  - SUICIDAL IDEATION [None]
